FAERS Safety Report 5600102-8 (Version None)
Quarter: 2008Q1

REPORT INFORMATION
  Report Type: 
  Country: None (occurrence: None)
  Receive Date: 20080123
  Receipt Date: 20080118
  Transmission Date: 20080703
  Serious: Yes (Other)
  Sender: FDA-Public Use
  Company Number: A0704939A

PATIENT
  Age: 10 Year
  Sex: Male

DRUGS (9)
  1. EPIVIR [Suspect]
     Indication: HIV INFECTION
     Route: 048
     Dates: start: 20010418
  2. ATAZANAVIR SULFATE [Suspect]
     Indication: HIV INFECTION
     Dosage: 550MG PER DAY
     Route: 048
     Dates: start: 20010418
  3. ZERIT [Suspect]
     Indication: HIV INFECTION
     Dates: start: 20010418
  4. BACTRIM [Concomitant]
  5. ZITHROMAX [Concomitant]
  6. RITALIN [Concomitant]
  7. ZYPREXA [Concomitant]
  8. AZMACORT [Concomitant]
  9. ALBUTEROL [Concomitant]

REACTIONS (4)
  - HEADACHE [None]
  - HYPERBILIRUBINAEMIA [None]
  - JAUNDICE [None]
  - OCULAR ICTERUS [None]
